FAERS Safety Report 7967913-5 (Version None)
Quarter: 2011Q4

REPORT INFORMATION
  Report Type: 
  Country: None (occurrence: None)
  Receive Date: 20111207
  Receipt Date: 20111124
  Transmission Date: 20120403
  Serious: Yes (Hospitalization)
  Sender: FDA-Public Use
  Company Number: TCI2011A06292

PATIENT
  Age: 76 Year
  Sex: Female

DRUGS (6)
  1. AMLODIPINE [Concomitant]
  2. SLOW-K [Concomitant]
  3. CHLORPROMAZINE HCL [Concomitant]
  4. ROZEREM [Suspect]
     Indication: SLEEP DISORDER
     Dosage: 8 MG (8 MG,1 IN 1 D) PER ORAL
     Route: 048
  5. HELVOTTZ (EPINASTINE HYDROCHLORIDE) [Concomitant]
  6. RISPERIDONE [Concomitant]

REACTIONS (1)
  - JAUNDICE [None]
